FAERS Safety Report 6530259-6 (Version None)
Quarter: 2009Q4

REPORT INFORMATION
  Report Type: 
  Country: None (occurrence: None)
  Receive Date: 20091231
  Receipt Date: 20091218
  Transmission Date: 20100525
  Serious: Yes (Other)
  Sender: FDA-Public Use
  Company Number: 2009SP042891

PATIENT
  Age: 21 Year
  Sex: Female
  Weight: 101.3336 kg

DRUGS (1)
  1. IMPLANON [Suspect]
     Indication: DRUG USE FOR UNKNOWN INDICATION
     Dates: start: 20080728, end: 20090707

REACTIONS (3)
  - ARRHYTHMIA [None]
  - HAEMORRHAGE [None]
  - WEIGHT INCREASED [None]
